FAERS Safety Report 13412399 (Version 1)
Quarter: 2017Q2

REPORT INFORMATION
  Report Type: Spontaneous
  Country: US (occurrence: US)
  Receive Date: 20170406
  Receipt Date: 20170406
  Transmission Date: 20170830
  Serious: No
  Sender: FDA-Public Use
  Company Number: None

PATIENT
  Age: 63 Year
  Sex: Female
  Weight: 57.2 kg

DRUGS (6)
  1. GLUCOSAMINE SULFATE [Concomitant]
     Active Substance: GLUCOSAMINE SULFATE
  2. IBUPROFEN. [Concomitant]
     Active Substance: IBUPROFEN
  3. ALEVE [Concomitant]
     Active Substance: NAPROXEN SODIUM
  4. VITAMIN D3 [Concomitant]
     Active Substance: CHOLECALCIFEROL
  5. FORTEO [Suspect]
     Active Substance: TERIPARATIDE
     Indication: OSTEOPOROSIS
     Dosage: ?          QUANTITY:H AN MM; AT.?;?
     Route: 058
     Dates: start: 20161128, end: 20170317
  6. CENTRUM SILVER MULTI-VIT [Concomitant]

REACTIONS (4)
  - Muscular weakness [None]
  - Herpes zoster [None]
  - Neuralgia [None]
  - Tachycardia [None]

NARRATIVE: CASE EVENT DATE: 20161215
